FAERS Safety Report 18169516 (Version 1)
Quarter: 2020Q3

REPORT INFORMATION
  Report Type: Spontaneous
  Country: CN (occurrence: CN)
  Receive Date: 20200819
  Receipt Date: 20200819
  Transmission Date: 20201103
  Serious: Yes (Life-Threatening, Hospitalization, Other)
  Sender: FDA-Public Use
  Company Number: CN-SHIRE-CN202026295

PATIENT

DRUGS (2)
  1. HUMAN ALBUMIN [Suspect]
     Active Substance: ALBUMIN HUMAN
     Indication: BLOOD ALBUMIN DECREASED
     Dosage: 100 MILLILITER, 1X/DAY:QD
     Route: 042
     Dates: start: 20200731, end: 20200731
  2. FUROSEMIDE. [Suspect]
     Active Substance: FUROSEMIDE
     Indication: POLYURIA
     Dosage: 10 MILLIGRAM, 1X/DAY:QD
     Route: 042
     Dates: start: 20200731, end: 20200731

REACTIONS (5)
  - Blood pressure decreased [Recovering/Resolving]
  - Infusion related reaction [Recovering/Resolving]
  - Rash erythematous [Recovering/Resolving]
  - Anaphylactic shock [Recovering/Resolving]
  - Chest discomfort [Recovering/Resolving]

NARRATIVE: CASE EVENT DATE: 20200731
